FAERS Safety Report 25123352 (Version 1)
Quarter: 2025Q1

REPORT INFORMATION
  Report Type: Spontaneous
  Country: FR (occurrence: FR)
  Receive Date: 20250326
  Receipt Date: 20250326
  Transmission Date: 20250408
  Serious: Yes (Other)
  Sender: ORGANON
  Company Number: FR-ORGANON-O2503FRA001893

PATIENT
  Age: 31 Year
  Sex: Female

DRUGS (1)
  1. NEXPLANON [Suspect]
     Active Substance: ETONOGESTREL
     Route: 059
     Dates: start: 2015

REACTIONS (5)
  - Umbilical hernia [Unknown]
  - Cholelithiasis [Unknown]
  - Intervertebral disc annular tear [Unknown]
  - Endometriosis [Unknown]
  - Pelvic pain [Unknown]

NARRATIVE: CASE EVENT DATE: 20241201
